FAERS Safety Report 7772346-0 (Version None)
Quarter: 2011Q3

REPORT INFORMATION
  Report Type: 
  Country: None (occurrence: None)
  Receive Date: 20110922
  Receipt Date: 20100826
  Transmission Date: 20111222
  Serious: Yes (Other)
  Sender: FDA-Public Use
  Company Number: US-ASTRAZENECA-2009UW06978

PATIENT
  Age: 426 Month
  Sex: Male

DRUGS (11)
  1. SEROQUEL [Suspect]
     Indication: DEPRESSION
     Route: 048
     Dates: start: 20050801
  2. SEROQUEL [Suspect]
     Dosage: 100 MG ONE P.M THREE TABLET AT BEDTIME ONE TABLET P R N
     Route: 048
     Dates: start: 20070801
  3. SEROQUEL [Suspect]
     Indication: ANXIETY
     Route: 048
     Dates: start: 20050801
  4. SEROQUEL [Suspect]
     Indication: POST-TRAUMATIC STRESS DISORDER
     Route: 048
     Dates: start: 20050801
  5. SEROQUEL [Suspect]
     Dosage: 100 MG ONE P.M THREE TABLET AT BEDTIME ONE TABLET P R N
     Route: 048
     Dates: start: 20070801
  6. SEROQUEL [Suspect]
     Indication: BIPOLAR DISORDER
     Route: 048
     Dates: start: 20050801
  7. SEROQUEL [Suspect]
     Dosage: 100 MG ONE P.M THREE TABLET AT BEDTIME ONE TABLET P R N
     Route: 048
     Dates: start: 20070801
  8. SIMVASTATIN [Concomitant]
     Dates: start: 20070801
  9. PRAZOSIN HCL [Concomitant]
     Dates: start: 20070801
  10. SEROQUEL [Suspect]
     Dosage: 100 MG ONE P.M THREE TABLET AT BEDTIME ONE TABLET P R N
     Route: 048
     Dates: start: 20070801
  11. FELODIPINE [Concomitant]
     Dates: start: 20070801

REACTIONS (3)
  - PANCREATITIS [None]
  - DIABETES MELLITUS [None]
  - DIABETIC KETOACIDOSIS [None]
